FAERS Safety Report 17103576 (Version 1)
Quarter: 2019Q4

REPORT INFORMATION
  Report Type: Spontaneous
  Country: US (occurrence: US)
  Receive Date: 20191202
  Receipt Date: 20191202
  Transmission Date: 20200122
  Serious: Yes (Hospitalization)
  Sender: FDA-Public Use
  Company Number: None

PATIENT
  Age: 47 Year
  Sex: Female
  Weight: 70 kg

DRUGS (1)
  1. CAPECITABINE. [Suspect]
     Active Substance: CAPECITABINE
     Indication: BREAST CANCER
     Route: 048
     Dates: start: 20191125, end: 20191129

REACTIONS (7)
  - Headache [None]
  - Facial paralysis [None]
  - Anaesthesia oral [None]
  - Drug intolerance [None]
  - Magnetic resonance imaging brain abnormal [None]
  - Ageusia [None]
  - Dysarthria [None]

NARRATIVE: CASE EVENT DATE: 20191125
